FAERS Safety Report 5807733-0 (Version None)
Quarter: 2008Q3

REPORT INFORMATION
  Report Type: 
  Country: None (occurrence: None)
  Receive Date: 20080711
  Receipt Date: 20080125
  Transmission Date: 20090109
  Serious: Yes (Death, Other)
  Sender: FDA-Public Use
  Company Number: US-ROCHE-545364

PATIENT
  Age: 47 Year
  Sex: Male

DRUGS (6)
  1. DIAZEPAM [Suspect]
     Indication: DRUG USE FOR UNKNOWN INDICATION
     Dosage: ROUTE: INGESTION.
     Route: 048
  2. METHADONE [Suspect]
     Indication: DRUG USE FOR UNKNOWN INDICATION
     Dosage: ROUTE: INGESTION.
     Route: 048
  3. BENZODIAZEPINE [Suspect]
     Indication: DRUG USE FOR UNKNOWN INDICATION
     Dosage: ROUTE: INGESTION.
     Route: 048
  4. OPIOID ANALGESICS [Suspect]
     Indication: DRUG USE FOR UNKNOWN INDICATION
     Dosage: OPIOIDS/OPIOID ANTAGONIST. ROUTE: INGESTION.
     Route: 048
  5. OPIOID ANTAGONISTS [Suspect]
     Indication: DRUG USE FOR UNKNOWN INDICATION
     Dosage: OPIOIDS/OPIOID ANTAGONIST. ROUTE: INGESTION.
     Route: 048
  6. ALPRAZOLAM [Suspect]
     Indication: DRUG USE FOR UNKNOWN INDICATION
     Dosage: ROUTE: INGESTION.
     Route: 048

REACTIONS (3)
  - CARDIAC ARREST [None]
  - COMPLETED SUICIDE [None]
  - RESPIRATORY ARREST [None]
